FAERS Safety Report 7522966-3 (Version None)
Quarter: 2011Q2

REPORT INFORMATION
  Report Type: 
  Country: None (occurrence: None)
  Receive Date: 20110603
  Receipt Date: 20110525
  Transmission Date: 20111010
  Serious: Yes (Hospitalization)
  Sender: FDA-Public Use
  Company Number: US-BRISTOL-MYERS SQUIBB COMPANY-15311046

PATIENT
  Age: 78 Year
  Sex: Male
  Weight: 73 kg

DRUGS (27)
  1. PLAVIX [Concomitant]
     Route: 048
  2. ENSURE [Concomitant]
     Route: 048
     Dates: start: 20100822
  3. MORPHINE [Concomitant]
     Dates: start: 20100825, end: 20100825
  4. ZOCOR [Concomitant]
     Route: 048
  5. HYDROCORTISONE [Concomitant]
     Dosage: 1DF:2.5 OINTMENT TO FACE
     Route: 061
     Dates: start: 20100825, end: 20100921
  6. ZOMETA [Concomitant]
     Route: 042
     Dates: start: 20100811, end: 20100908
  7. KAYEXALATE [Concomitant]
     Dosage: 1DF:2 DOSES
     Dates: start: 20100910, end: 20100911
  8. CARBOPLATIN [Suspect]
     Indication: NON-SMALL CELL LUNG CANCER
     Dosage: RECENT INF(2ND):01SEP10 INTERRUPTED ON 22SEP2010
     Route: 042
     Dates: start: 20100811
  9. COLACE [Concomitant]
     Route: 048
     Dates: start: 20100825, end: 20100908
  10. POTASSIUM CHLORIDE [Concomitant]
     Dosage: 1 IN 1 ONCE
     Route: 042
     Dates: start: 20100908, end: 20100908
  11. CETUXIMAB [Suspect]
     Indication: NON-SMALL CELL LUNG CANCER
     Dosage: INTERRUPTED ON 8SEP10+22SEP2010 11AUG-8SEP10(28DAYS) RECENT INF(6TH):08SEP10
     Route: 042
     Dates: start: 20100811, end: 20100923
  12. GEMCITABINE [Suspect]
     Indication: NON-SMALL CELL LUNG CANCER
     Dosage: RECENT INF(4TH):08SEP10 INTERRUPTED ON 22SEP2010
     Route: 042
     Dates: start: 20100811, end: 20100908
  13. MINOCYCLINE HCL [Concomitant]
     Route: 048
     Dates: start: 20100811, end: 20100921
  14. PANTOPRAZOLE [Concomitant]
     Route: 048
  15. IMODIUM [Concomitant]
     Dosage: 1DF:1 TABLET
     Route: 048
     Dates: start: 20100917, end: 20100918
  16. ALOXI [Concomitant]
     Route: 042
     Dates: start: 20100811, end: 20100908
  17. MEGACE [Concomitant]
     Dates: start: 20100817, end: 20100831
  18. FOLIC ACID [Concomitant]
     Route: 048
     Dates: start: 20100809
  19. MEGACE ES [Concomitant]
     Route: 048
     Dates: start: 20100901
  20. ALLOPURINOL [Concomitant]
     Route: 048
  21. DECADRON [Concomitant]
     Route: 042
     Dates: start: 20100811, end: 20100908
  22. FENTANYL [Concomitant]
     Route: 062
     Dates: start: 20100814
  23. LACTULOSE [Concomitant]
     Route: 048
     Dates: start: 20100831, end: 20100908
  24. AMLODIPINE [Concomitant]
     Route: 048
  25. LEVOTHYROXINE SODIUM [Concomitant]
     Route: 048
  26. MAGNESIUM SULFATE [Concomitant]
     Dosage: 1 IN 1 ONCE
     Route: 042
     Dates: start: 20100908, end: 20100908
  27. BENADRYL [Concomitant]
     Route: 042
     Dates: start: 20100811, end: 20100908

REACTIONS (2)
  - HYPOTENSION [None]
  - DEHYDRATION [None]
